FAERS Safety Report 16321312 (Version 1)
Quarter: 2019Q2

REPORT INFORMATION
  Report Type: Spontaneous
  Country: US (occurrence: US)
  Receive Date: 20190516
  Receipt Date: 20190516
  Transmission Date: 20190711
  Serious: Yes (Death, Hospitalization)
  Sender: FDA-Public Use
  Company Number: US-TEVA-2019-US-1049633

PATIENT
  Age: 22 Year
  Sex: Male

DRUGS (4)
  1. MESNA. [Concomitant]
     Active Substance: MESNA
     Route: 065
  2. IFOSFAMIDE. [Suspect]
     Active Substance: IFOSFAMIDE
     Indication: METASTATIC CHORIOCARCINOMA
     Route: 065
  3. CISPLATIN. [Suspect]
     Active Substance: CISPLATIN
     Indication: METASTATIC CHORIOCARCINOMA
     Route: 065
  4. ETOPOSIDE. [Suspect]
     Active Substance: ETOPOSIDE
     Indication: METASTATIC CHORIOCARCINOMA
     Route: 065

REACTIONS (6)
  - Acute respiratory distress syndrome [Fatal]
  - Gastrointestinal haemorrhage [Fatal]
  - Tumour lysis syndrome [Fatal]
  - Respiratory failure [Fatal]
  - Cardiac arrest [Fatal]
  - Pulmonary alveolar haemorrhage [Fatal]
